FAERS Safety Report 8847509 (Version 2)
Quarter: 2012Q4

REPORT INFORMATION
  Report Type: 
  Country: US (occurrence: US)
  Receive Date: 20121018
  Receipt Date: 20121203
  Transmission Date: 20130627
  Serious: Yes (Hospitalization)
  Sender: FDA-Public Use
  Company Number: US-ELI_LILLY_AND_COMPANY-US201210003775

PATIENT
  Sex: Female
  Weight: 80.27 kg

DRUGS (1)
  1. HUMATROPE [Suspect]
     Dosage: 0.6 mg, qd
     Route: 058
     Dates: start: 200908

REACTIONS (3)
  - Systemic lupus erythematosus [Unknown]
  - Pneumonia [Recovered/Resolved]
  - Pulmonary oedema [Not Recovered/Not Resolved]
